FAERS Safety Report 14701180 (Version 1)
Quarter: 2018Q1

REPORT INFORMATION
  Report Type: Spontaneous
  Country: US (occurrence: US)
  Receive Date: 20180330
  Receipt Date: 20180330
  Transmission Date: 20180509
  Serious: Yes (Other)
  Sender: FDA-Public Use
  Company Number: US-SA-2018SA069118

PATIENT

DRUGS (1)
  1. AMBIEN [Suspect]
     Active Substance: ZOLPIDEM TARTRATE
     Route: 048
     Dates: start: 20180110

REACTIONS (6)
  - Impulse-control disorder [Unknown]
  - Frostbite [Unknown]
  - Haemorrhage [Unknown]
  - Impaired work ability [Unknown]
  - Nerve injury [Unknown]
  - Feeling abnormal [Unknown]
